FAERS Safety Report 20985384 (Version 3)
Quarter: 2025Q3

REPORT INFORMATION
  Report Type: Report from Study
  Country: EU (occurrence: EU)
  Receive Date: 20220621
  Receipt Date: 20250710
  Transmission Date: 20251021
  Serious: Yes (Hospitalization)
  Sender: AUROBINDO
  Company Number: EU-ABPPROD-2018AB000190

PATIENT
  Age: 7 Year
  Sex: Male

DRUGS (6)
  1. AMOXICILLIN\CLAVULANIC ACID [Suspect]
     Active Substance: AMOXICILLIN\CLAVULANIC ACID
     Indication: Ear infection
     Route: 065
  2. ACETAMINOPHEN [Suspect]
     Active Substance: ACETAMINOPHEN
     Indication: Ear infection
     Route: 065
  3. CLARITHROMYCIN [Suspect]
     Active Substance: CLARITHROMYCIN
     Indication: Ear infection
     Route: 065
  4. NIFLUMIC ACID [Suspect]
     Active Substance: NIFLUMIC ACID
     Indication: Ear infection
     Route: 065
  5. ANTIPYRINE\PROCAINE HYDROCHLORIDE [Suspect]
     Active Substance: ANTIPYRINE\PROCAINE HYDROCHLORIDE
     Indication: Ear infection
     Route: 065
  6. MORNIFLUMATE [Suspect]
     Active Substance: MORNIFLUMATE
     Indication: Ear infection
     Route: 065
     Dates: start: 201507

REACTIONS (1)
  - Vasculitis [Unknown]
